FAERS Safety Report 7032299-X (Version None)
Quarter: 2010Q4

REPORT INFORMATION
  Report Type: 
  Country: None (occurrence: None)
  Receive Date: 20101007
  Receipt Date: 20100526
  Transmission Date: 20110411
  Serious: Yes (Other)
  Sender: FDA-Public Use
  Company Number: US-BRISTOL-MYERS SQUIBB COMPANY-15122856

PATIENT
  Age: 55 Year
  Sex: Male

DRUGS (8)
  1. CETUXIMAB [Suspect]
     Indication: ADENOCARCINOMA
     Route: 065
  2. ELOXATIN [Suspect]
     Indication: ADENOCARCINOMA
     Route: 042
  3. CAPECITABINE [Suspect]
     Indication: ADENOCARCINOMA
     Route: 042
  4. BEVACIZUMAB [Suspect]
     Indication: ADENOCARCINOMA
     Route: 065
  5. LEUCOVORIN CALCIUM [Suspect]
     Indication: ADENOCARCINOMA
     Route: 065
  6. FLUOROURACIL [Suspect]
     Indication: ADENOCARCINOMA
     Dosage: 400MG/M2 BOLUS DAY 1,2400MG/M2 OVER 46HR EVERY 2WK BFOL:BOLUS 500MG/M2 DAYS1,8,15 EVERY 4 WK
     Route: 065
  7. IRINOTECAN HCL [Suspect]
     Indication: ADENOCARCINOMA
     Route: 065
  8. GEMCITABINE [Suspect]
     Indication: ADENOCARCINOMA
     Route: 065

REACTIONS (3)
  - GINGIVAL BLEEDING [None]
  - NEUROPATHY PERIPHERAL [None]
  - PALMAR-PLANTAR ERYTHRODYSAESTHESIA SYNDROME [None]
